FAERS Safety Report 7396998-2 (Version None)
Quarter: 2011Q2

REPORT INFORMATION
  Report Type: 
  Country: None (occurrence: None)
  Receive Date: 20110406
  Receipt Date: 20110328
  Transmission Date: 20111010
  Serious: Yes (Hospitalization, Other)
  Sender: FDA-Public Use
  Company Number: US-BAYER-201025113NA

PATIENT
  Sex: Female

DRUGS (4)
  1. BETASERON [Suspect]
     Dosage: 8 MIU, QOD
     Route: 058
  2. BETASERON [Suspect]
     Indication: MULTIPLE SCLEROSIS
     Dosage: 6 MIU, QOD
     Route: 058
     Dates: start: 20100520, end: 20101114
  3. AMBIEN [Concomitant]
  4. CELEBREX [Concomitant]

REACTIONS (10)
  - PULMONARY HYPERTENSION [None]
  - DYSKINESIA [None]
  - PNEUMONIA [None]
  - ATRIAL FIBRILLATION [None]
  - HEART RATE INCREASED [None]
  - HYPOTENSION [None]
  - MUSCLE TWITCHING [None]
  - HIP ARTHROPLASTY [None]
  - PAIN IN EXTREMITY [None]
  - INSOMNIA [None]
